FAERS Safety Report 8037866-2 (Version None)
Quarter: 2012Q1

REPORT INFORMATION
  Report Type: 
  Country: None (occurrence: None)
  Receive Date: 20120111
  Receipt Date: 20120105
  Transmission Date: 20120608
  Serious: Yes (Other)
  Sender: FDA-Public Use
  Company Number: PHHY2012TW001039

PATIENT
  Age: 45 Year
  Sex: Male

DRUGS (8)
  1. DEXAMETHASONE TAB [Concomitant]
     Dosage: 10 MG, UNK
  2. GRANISETRON [Concomitant]
     Dosage: 3 MG, UNK
  3. LEUCOVORIN CALCIUM [Concomitant]
     Dosage: UNK
  4. FLUOROURACIL [Concomitant]
     Indication: COLON CANCER
     Dosage: UNK
  5. FLUOROURACIL [Concomitant]
     Dosage: 2400 MG/M2, UNK
  6. IRINOTECAN HCL [Concomitant]
     Indication: COLON CANCER
     Dosage: UNK
  7. LEUCOVORIN CALCIUM [Concomitant]
     Dosage: 100 MG/M2, UNK
  8. OXALIPLATIN [Suspect]
     Indication: COLON CANCER
     Dosage: 80 MG/M2, UNK

REACTIONS (8)
  - KOUNIS SYNDROME [None]
  - BLOOD PRESSURE DECREASED [None]
  - CHEST DISCOMFORT [None]
  - CONFUSIONAL STATE [None]
  - HYPERHIDROSIS [None]
  - CHEST PAIN [None]
  - PRINZMETAL ANGINA [None]
  - DYSPNOEA [None]
